FAERS Safety Report 20472639 (Version 1)
Quarter: 2022Q1

REPORT INFORMATION
  Report Type: Report from Study
  Country: US (occurrence: US)
  Receive Date: 20220215
  Receipt Date: 20220215
  Transmission Date: 20220423
  Serious: Yes (Hospitalization)
  Sender: FDA-Public Use
  Company Number: US-ABBVIE-22K-163-4277228-00

PATIENT
  Sex: Female

DRUGS (2)
  1. RINVOQ [Suspect]
     Active Substance: UPADACITINIB
     Indication: Rheumatoid arthritis
     Route: 048
  2. PFIZER-BIONTECH COVID-19 VACCINE [Suspect]
     Active Substance: TOZINAMERAN
     Indication: COVID-19 immunisation
     Route: 030
     Dates: start: 20211205, end: 20211205

REACTIONS (9)
  - Obstruction [Unknown]
  - Scar [Unknown]
  - Pain [Not Recovered/Not Resolved]
  - Rheumatoid arthritis [Unknown]
  - Fluid retention [Not Recovered/Not Resolved]
  - Vasculitis [Recovered/Resolved]
  - Blood glucose increased [Not Recovered/Not Resolved]
  - Musculoskeletal stiffness [Unknown]
  - Mobility decreased [Not Recovered/Not Resolved]
